FAERS Safety Report 18755785 (Version 1)
Quarter: 2021Q1

REPORT INFORMATION
  Report Type: Spontaneous
  Country: US (occurrence: US)
  Receive Date: 20210115
  Receipt Date: 20210115
  Transmission Date: 20210419
  Serious: Yes (Other)
  Sender: FDA-Public Use
  Company Number: None

PATIENT
  Age: 70 Year
  Sex: Female

DRUGS (1)
  1. PROGESTERONE 100MG CAPSULES [Suspect]
     Active Substance: PROGESTERONE
     Indication: MENOPAUSE
     Route: 048

REACTIONS (2)
  - Menopausal symptoms [None]
  - Drug ineffective [None]

NARRATIVE: CASE EVENT DATE: 20200714
